FAERS Safety Report 19456547 (Version 1)
Quarter: 2021Q2

REPORT INFORMATION
  Report Type: Spontaneous
  Country: US (occurrence: US)
  Receive Date: 20210624
  Receipt Date: 20210624
  Transmission Date: 20210717
  Serious: Yes (Disabling, Other)
  Sender: FDA-Public Use
  Company Number: None

PATIENT
  Sex: Female

DRUGS (1)
  1. DESMOPRESSIN ACETATE NASAL SOLUTION 0.01% (NASAL SPRAY) [Suspect]
     Active Substance: DESMOPRESSIN ACETATE
     Indication: DIABETES INSIPIDUS
     Dosage: ?          QUANTITY:1 PUFF(S);OTHER ROUTE:NASALLY?
     Dates: start: 20210611, end: 20210616

REACTIONS (5)
  - Headache [None]
  - Malaise [None]
  - Product quality issue [None]
  - Burning sensation [None]
  - Dehydration [None]

NARRATIVE: CASE EVENT DATE: 20210611
